FAERS Safety Report 7375915-5 (Version None)
Quarter: 2011Q1

REPORT INFORMATION
  Report Type: 
  Country: None (occurrence: None)
  Receive Date: 20110325
  Receipt Date: 20110317
  Transmission Date: 20110831
  Serious: Yes (Other)
  Sender: FDA-Public Use
  Company Number: B0708122A

PATIENT
  Age: 29 Year
  Sex: Female

DRUGS (1)
  1. SERETIDE ACCUHALER [Suspect]
     Indication: ASTHMA
     Dosage: 1PUFF TWICE PER DAY
     Route: 065
     Dates: start: 20090101

REACTIONS (3)
  - THROMBOCYTOPENIA [None]
  - ASTHENIA [None]
  - DIZZINESS [None]
